FAERS Safety Report 8605391-3 (Version None)
Quarter: 2012Q3

REPORT INFORMATION
  Report Type: 
  Country: None (occurrence: None)
  Receive Date: 20120807
  Receipt Date: 20120726
  Transmission Date: 20120928
  Serious: Yes (Hospitalization)
  Sender: FDA-Public Use
  Company Number: DKLU1083495

PATIENT
  Age: 12 Month
  Sex: Male

DRUGS (8)
  1. SABRIL [Suspect]
     Indication: INFANTILE SPASMS
     Dosage: 700 MG MILLIGRAM(S), 2 IN 1 D, ORAL 250 MG MILLIGRAM(S), 2 IN 1 D, ORAL
     Route: 048
     Dates: start: 20120701
  2. SABRIL [Suspect]
     Indication: INFANTILE SPASMS
     Dosage: 700 MG MILLIGRAM(S), 2 IN 1 D, ORAL 250 MG MILLIGRAM(S), 2 IN 1 D, ORAL
     Route: 048
     Dates: start: 20110713
  3. KEPPRA [Concomitant]
  4. TRILEPTAL [Concomitant]
  5. PHENOBARBITAL TAB [Concomitant]
  6. KLONOPIN [Concomitant]
  7. TOPAMAX [Concomitant]
  8. KETOGENIC DIET (PROTEIN SUPPLEMENTS) [Concomitant]

REACTIONS (1)
  - BRAIN OPERATION [None]
